FAERS Safety Report 8502876-5 (Version None)
Quarter: 2012Q3

REPORT INFORMATION
  Report Type: 
  Country: None (occurrence: None)
  Receive Date: 20120711
  Receipt Date: 20120627
  Transmission Date: 20120928
  Serious: Yes (Hospitalization, Other)
  Sender: FDA-Public Use
  Company Number: GB-MYLANLABS-2012S1013209

PATIENT
  Sex: Female

DRUGS (2)
  1. PARAFFIN LIQUID W/WHITE SOFT PARAFFIN/WOOL FA [Concomitant]
     Indication: DRY SKIN
     Route: 061
  2. DONEPEZIL HCL [Suspect]
     Indication: PRODUCT USED FOR UNKNOWN INDICATION
     Route: 048

REACTIONS (2)
  - BRADYCARDIA [None]
  - ELECTROCARDIOGRAM QT PROLONGED [None]
